FAERS Safety Report 4278087-9 (Version None)
Quarter: 2004Q1

REPORT INFORMATION
  Report Type: 
  Country: None (occurrence: None)
  Receive Date: 20040121
  Receipt Date: 20031107
  Transmission Date: 20041129
  Serious: No
  Sender: FDA-Public Use
  Company Number: RB-245-2003

PATIENT
  Age: 25 Year
  Sex: Male

DRUGS (1)
  1. BUPRENORPHINE HYDROCHLORIDE [Suspect]
     Dosage: 16 MG

REACTIONS (2)
  - HYPOAESTHESIA [None]
  - HYPOTHERMIA [None]
